FAERS Safety Report 19964576 (Version 1)
Quarter: 2021Q4

REPORT INFORMATION
  Report Type: Other
  Country: IT (occurrence: IT)
  Receive Date: 20211018
  Receipt Date: 20211018
  Transmission Date: 20220303
  Serious: Yes (Other)
  Sender: FDA-Public Use
  Company Number: IT-ROCHE-2934757

PATIENT

DRUGS (9)
  1. RITUXIMAB [Suspect]
     Active Substance: RITUXIMAB
     Indication: Hairy cell leukaemia
     Route: 041
  2. COBIMETINIB [Suspect]
     Active Substance: COBIMETINIB
     Indication: Hairy cell leukaemia
     Route: 065
  3. VEMURAFENIB [Suspect]
     Active Substance: VEMURAFENIB
     Indication: Hairy cell leukaemia
     Route: 065
  4. INTERFERON ALFA-2A [Suspect]
     Active Substance: INTERFERON ALFA-2A
     Indication: Hairy cell leukaemia
     Route: 065
  5. CLADRIBINE [Suspect]
     Active Substance: CLADRIBINE
     Indication: Hairy cell leukaemia
     Dosage: FOR 5-7 CONSECUTIVE DAYS OR ONCE A WEEK FOR 5 CONSECUTIVE WEEKS
     Route: 042
  6. CLADRIBINE [Suspect]
     Active Substance: CLADRIBINE
     Dosage: FOR 5-7 CONSECUTIVE DAYS OR ONCE A WEEK FOR 5 CONSECUTIVE WEEKS
     Route: 058
  7. PENTOSTATIN [Suspect]
     Active Substance: PENTOSTATIN
     Indication: Hairy cell leukaemia
     Route: 065
  8. MOXETUMOMAB PASUDOTOX [Suspect]
     Active Substance: MOXETUMOMAB PASUDOTOX
     Indication: Hairy cell leukaemia
     Dosage: ON DAYS 1, 3, 5 EVERY 28 DAYS UP TO SIX CYCLES
     Route: 065
  9. CHLORAMBUCIL [Suspect]
     Active Substance: CHLORAMBUCIL
     Indication: Hairy cell leukaemia
     Route: 065

REACTIONS (5)
  - Neutropenia [Unknown]
  - Sepsis [Unknown]
  - Febrile neutropenia [Unknown]
  - Hepatotoxicity [Unknown]
  - Urticaria [Unknown]
